FAERS Safety Report 4295105-2 (Version None)
Quarter: 2004Q1

REPORT INFORMATION
  Report Type: 
  Country: None (occurrence: None)
  Receive Date: 20040216
  Receipt Date: 20040203
  Transmission Date: 20041129
  Serious: Yes (Other)
  Sender: FDA-Public Use
  Company Number: US-GLAXOSMITHKLINE-B0322467A

PATIENT
  Sex: Female

DRUGS (3)
  1. ZIDOVUDINE [Suspect]
     Indication: HIV INFECTION
     Route: 065
  2. LAMIVUDINE [Suspect]
     Indication: HIV INFECTION
     Route: 065
  3. NEVIRAPINE [Suspect]
     Indication: HIV INFECTION
     Route: 065

REACTIONS (2)
  - HEPATOTOXICITY [None]
  - STEVENS-JOHNSON SYNDROME [None]
